FAERS Safety Report 9286364 (Version 1)
Quarter: 2013Q2

REPORT INFORMATION
  Report Type: Spontaneous
  Country: US (occurrence: US)
  Receive Date: 20130513
  Receipt Date: 20130513
  Transmission Date: 20140414
  Serious: No
  Sender: FDA-Public Use
  Company Number: US-BAYER-2013-059053

PATIENT
  Age: 23 Year
  Sex: Male
  Weight: 117 kg

DRUGS (1)
  1. ALEVE CAPLET [Suspect]
     Indication: HEADACHE
     Dosage: 5 DF, UNK
     Route: 048

REACTIONS (2)
  - Drug ineffective [None]
  - Incorrect dose administered [None]
